FAERS Safety Report 5664066-3 (Version None)
Quarter: 2008Q1

REPORT INFORMATION
  Report Type: 
  Country: None (occurrence: None)
  Receive Date: 20080314
  Receipt Date: 20080303
  Transmission Date: 20080703
  Serious: Yes (Hospitalization)
  Sender: FDA-Public Use
  Company Number: US-ELI_LILLY_AND_COMPANY-US200803000183

PATIENT
  Age: 81 Year
  Sex: Female

DRUGS (5)
  1. FORTEO [Suspect]
     Dates: start: 20060101, end: 20071101
  2. FORTEO [Suspect]
     Dates: start: 20080201
  3. DARVON [Concomitant]
  4. MACRODANTIN [Concomitant]
  5. ANTIHYPERTENSIVES [Concomitant]
     Indication: HYPERTENSION

REACTIONS (4)
  - ASTHENIA [None]
  - KIDNEY INFECTION [None]
  - LUMBAR SPINAL STENOSIS [None]
  - PNEUMONIA [None]
